FAERS Safety Report 6826422-7 (Version None)
Quarter: 2010Q3

REPORT INFORMATION
  Report Type: 
  Country: None (occurrence: None)
  Receive Date: 20100709
  Receipt Date: 20100629
  Transmission Date: 20110219
  Serious: Yes (Other)
  Sender: FDA-Public Use
  Company Number: US-BAYER-201026799NA

PATIENT
  Age: 50 Year
  Sex: Male

DRUGS (2)
  1. ULTRAVIST 370 [Suspect]
     Indication: COMPUTERISED TOMOGRAM ABDOMEN
     Dosage: AS USED: 100 ML  UNIT DOSE: 100 ML
     Route: 042
     Dates: start: 20100629, end: 20100629
  2. GASTROGRAFIN [Concomitant]
     Dosage: 4 BOTTLES 60 MIN,40 MIN, 30 MIN + 20 MIN RESPECTIVELY
     Route: 048

REACTIONS (2)
  - COUGH [None]
  - DYSPNOEA [None]
